FAERS Safety Report 7913087-6 (Version None)
Quarter: 2011Q4

REPORT INFORMATION
  Report Type: 
  Country: None (occurrence: None)
  Receive Date: 20111114
  Receipt Date: 20111101
  Transmission Date: 20120403
  Serious: Yes (Disabling, Other)
  Sender: FDA-Public Use
  Company Number: AU-COVIDIEN/TYCO HEALTHCARE/MALLINCKRODT-T201102576

PATIENT
  Sex: Male

DRUGS (1)
  1. EXALGO [Suspect]
     Indication: PAIN
     Dosage: 4 MG, QD
     Route: 048
     Dates: start: 20111017, end: 20111025

REACTIONS (3)
  - INCOHERENT [None]
  - CONFUSIONAL STATE [None]
  - HALLUCINATION [None]
